FAERS Safety Report 7650645-0 (Version None)
Quarter: 2011Q3

REPORT INFORMATION
  Report Type: 
  Country: None (occurrence: None)
  Receive Date: 20110802
  Receipt Date: 20110729
  Transmission Date: 20111222
  Serious: Yes (Other)
  Sender: FDA-Public Use
  Company Number: US-BRACCO-004727

PATIENT
  Sex: Male

DRUGS (17)
  1. COUMADIN [Concomitant]
  2. PLAVIX [Concomitant]
  3. SYNTHROID [Concomitant]
  4. PROHANCE [Suspect]
     Indication: ANGIOGRAM
     Dates: start: 20040330, end: 20040330
  5. MAGNEVIST [Suspect]
     Indication: NUCLEAR MAGNETIC RESONANCE IMAGING
  6. OMNISCAN [Suspect]
     Indication: NUCLEAR MAGNETIC RESONANCE IMAGING
     Dates: start: 20050204
  7. MAGNEVIST [Suspect]
     Indication: ANGIOGRAM
     Dates: start: 20030909
  8. OMNISCAN [Suspect]
     Indication: ANGIOGRAM
     Dates: start: 20040330
  9. AVANDIA [Concomitant]
  10. ATENOLOL [Concomitant]
  11. RENAGEL [Concomitant]
  12. PROHANCE [Suspect]
     Indication: NUCLEAR MAGNETIC RESONANCE IMAGING
     Dates: start: 20040330, end: 20040330
  13. LISINOPRIL [Concomitant]
  14. ANALGESICS [Concomitant]
  15. OMNISCAN [Suspect]
     Dates: start: 20050113
  16. ASPIRIN [Concomitant]
     Dosage: } 100 MG
  17. NEPHROCAPS [Concomitant]

REACTIONS (1)
  - NEPHROGENIC SYSTEMIC FIBROSIS [None]
